FAERS Safety Report 9168012 (Version 1)
Quarter: 2013Q1

REPORT INFORMATION
  Report Type: Spontaneous
  Country: GB (occurrence: None)
  Receive Date: 20130305
  Receipt Date: 20130305
  Transmission Date: 20140127
  Serious: Yes (Other)
  Sender: FDA-Public Use
  Company Number: AUR-APL-2013-01668

PATIENT
  Age: 89 Year
  Sex: Male

DRUGS (6)
  1. AMOXICILLIN\CLAVULANIC ACID [Suspect]
     Indication: LOWER RESPIRATORY TRACT INFECTION
     Dosage: 1875 MG (625 MG, 3 IN 1 D), ORAL
     Route: 048
     Dates: start: 20130204, end: 20130206
  2. BISOPROLOL (BISOPROLOL) [Concomitant]
  3. CO-CODAMOL (PANADEINE CO) [Concomitant]
  4. MIRTAZAPINE (MIRTAZAPINE) [Concomitant]
  5. SIMVASTATIN (SIMVASTATIN) [Concomitant]
  6. WARFARIN (WARFARIN) [Concomitant]

REACTIONS (1)
  - Liver function test abnormal [None]
